FAERS Safety Report 12782373 (Version 1)
Quarter: 2016Q3

REPORT INFORMATION
  Report Type: Spontaneous
  Country: FR (occurrence: FR)
  Receive Date: 20160927
  Receipt Date: 20160927
  Transmission Date: 20161109
  Serious: Yes (Other)
  Sender: FDA-Public Use
  Company Number: FR-ROCHE-1835481

PATIENT
  Age: 70 Year
  Sex: Female

DRUGS (6)
  1. CALCIDOSE (FRANCE) [Concomitant]
     Active Substance: CALCIUM CARBONATE
  2. ACTONEL [Concomitant]
     Active Substance: RISEDRONATE SODIUM
  3. LASILIX [Concomitant]
     Active Substance: FUROSEMIDE
  4. LOXEN (FRANCE) [Concomitant]
     Active Substance: NICARDIPINE HYDROCHLORIDE
  5. MABTHERA [Suspect]
     Active Substance: RITUXIMAB
     Indication: PRODUCT USED FOR UNKNOWN INDICATION
     Dosage: 2 G FROM DAY 0 TO DAY 14
     Route: 065
     Dates: start: 20160705, end: 20160719
  6. CORTANCYL [Concomitant]
     Active Substance: PREDNISONE

REACTIONS (2)
  - Myocardial infarction [Recovered/Resolved with Sequelae]
  - Coronary artery disease [Recovered/Resolved with Sequelae]

NARRATIVE: CASE EVENT DATE: 20160722
